FAERS Safety Report 6211724-8 (Version None)
Quarter: 2009Q2

REPORT INFORMATION
  Report Type: 
  Country: None (occurrence: None)
  Receive Date: 20090602
  Receipt Date: 20090520
  Transmission Date: 20091009
  Serious: Yes (Life-Threatening, Hospitalization)
  Sender: FDA-Public Use
  Company Number: GB-PFIZER INC-2009215862

PATIENT
  Age: 53 Year

DRUGS (5)
  1. PHENYTOIN SODIUM AND PHENYTOIN [Suspect]
     Dosage: 200 MG, 1X/DAY
     Route: 048
     Dates: start: 20090115
  2. OMEPRAZOLE [Concomitant]
     Dosage: 20 MG, 1X/DAY
  3. SIMVASTATIN [Concomitant]
     Dosage: 40 MG, 1X/DAY
  4. SLOZEM [Concomitant]
     Dosage: 180 MG, 1X/DAY
  5. TIOTROPIUM BROMIDE [Concomitant]
     Dosage: 18 UG, 1X/DAY

REACTIONS (1)
  - NEUTROPENIA [None]
